FAERS Safety Report 6206334-2 (Version None)
Quarter: 2009Q2

REPORT INFORMATION
  Report Type: 
  Country: None (occurrence: None)
  Receive Date: 20090528
  Receipt Date: 20090520
  Transmission Date: 20091009
  Serious: Yes (Other)
  Sender: FDA-Public Use
  Company Number: PHEH2008US08454

PATIENT
  Age: 86 Year
  Sex: Female

DRUGS (10)
  1. EXELON [Suspect]
     Indication: AMNESIA
     Dosage: 4.6 MG, QD
     Route: 062
     Dates: start: 20080902, end: 20081019
  2. PLAVIX [Concomitant]
     Indication: CEREBROVASCULAR ACCIDENT
  3. PLAVIX [Concomitant]
     Indication: MYOCARDIAL INFARCTION
  4. NORTRIPTYLINE HCL [Concomitant]
  5. ATIVAN [Concomitant]
     Indication: ANXIETY
  6. LUVOX [Concomitant]
     Indication: DEPRESSION
  7. MEVACOR [Concomitant]
     Indication: BLOOD CHOLESTEROL
  8. LASIX [Concomitant]
     Indication: SWELLING
  9. LISINOPRIL [Concomitant]
  10. LEXAPRO [Concomitant]

REACTIONS (20)
  - ABNORMAL FAECES [None]
  - ANOREXIA [None]
  - ANXIETY [None]
  - ASTHENIA [None]
  - BALANCE DISORDER [None]
  - CONSTIPATION [None]
  - DIARRHOEA [None]
  - DRUG INEFFECTIVE [None]
  - FALL [None]
  - FLATULENCE [None]
  - FREQUENT BOWEL MOVEMENTS [None]
  - GASTROINTESTINAL DISORDER [None]
  - GASTROINTESTINAL SOUNDS ABNORMAL [None]
  - HEART RATE INCREASED [None]
  - MICTURITION DISORDER [None]
  - NERVOUSNESS [None]
  - POLLAKIURIA [None]
  - PRURITUS [None]
  - SWELLING [None]
  - WEIGHT DECREASED [None]
